FAERS Safety Report 4835959-1 (Version None)
Quarter: 2005Q4

REPORT INFORMATION
  Report Type: 
  Country: None (occurrence: None)
  Receive Date: 20051123
  Receipt Date: 20051010
  Transmission Date: 20060501
  Serious: Yes (Death, Hospitalization)
  Sender: FDA-Public Use
  Company Number: KR-SANOFI-SYNTHELABO-F01200502105

PATIENT
  Sex: Female

DRUGS (9)
  1. ELOXATIN [Suspect]
     Dosage: 187 MG
     Route: 042
     Dates: start: 20050928, end: 20050928
  2. TS-1 [Concomitant]
     Route: 048
     Dates: start: 20050928, end: 20050930
  3. DEGES [Concomitant]
     Dates: start: 20050928, end: 20050930
  4. MEGACE [Concomitant]
     Route: 042
     Dates: start: 20050928, end: 20050930
  5. ZANTAC [Concomitant]
     Route: 048
     Dates: start: 20050928, end: 20050930
  6. DEXAMETHASONE [Concomitant]
     Route: 042
     Dates: start: 20050928, end: 20050929
  7. DEXAMETHASONE [Concomitant]
     Route: 042
     Dates: start: 20050928, end: 20050928
  8. RAMOSETRON [Concomitant]
     Route: 042
     Dates: start: 20050928, end: 20050928
  9. CONOFEN [Concomitant]
     Route: 048
     Dates: start: 20050928, end: 20050930

REACTIONS (1)
  - GASTRIC HAEMORRHAGE [None]
